FAERS Safety Report 5596207-0 (Version None)
Quarter: 2007Q4

REPORT INFORMATION
  Report Type: 
  Country: None (occurrence: None)
  Receive Date: 20071218
  Receipt Date: 20061020
  Transmission Date: 20080405
  Serious: Yes (Hospitalization, Other)
  Sender: FDA-Public Use
  Company Number: 2006115198

PATIENT
  Age: 70 Year
  Sex: Male
  Weight: 68.9 kg

DRUGS (1)
  1. BEXTRA [Suspect]
     Indication: RHEUMATOID ARTHRITIS
     Dosage: 20 MG(20 ,G,1 IN 1 D)
     Dates: start: 20030409, end: 20041028

REACTIONS (1)
  - MYOCARDIAL INFARCTION [None]
